FAERS Safety Report 19850227 (Version 1)
Quarter: 2021Q3

REPORT INFORMATION
  Report Type: Report from Study
  Country: US (occurrence: US)
  Receive Date: 20210918
  Receipt Date: 20210918
  Transmission Date: 20211014
  Serious: Yes (Hospitalization)
  Sender: FDA-Public Use
  Company Number: US-ACCORD-238857

PATIENT
  Sex: Female
  Weight: 58.4 kg

DRUGS (1)
  1. CLOZAPINE ACCORD [Suspect]
     Active Substance: CLOZAPINE
     Indication: BIPOLAR DISORDER
     Dosage: 100MG AM AND 500MG PM
     Route: 048

REACTIONS (2)
  - Pyrexia [Unknown]
  - Escherichia bacteraemia [Unknown]
